FAERS Safety Report 9425117 (Version 2)
Quarter: 2013Q3

REPORT INFORMATION
  Report Type: Spontaneous
  Country: JP (occurrence: JP)
  Receive Date: 20130729
  Receipt Date: 20130806
  Transmission Date: 20140515
  Serious: Yes (Death)
  Sender: FDA-Public Use
  Company Number: JP-GLAXOSMITHKLINE-B0911123A

PATIENT
  Age: 61 Year
  Sex: Female

DRUGS (5)
  1. VOTRIENT [Suspect]
     Indication: NEOPLASM MALIGNANT
     Dosage: 200MG TWICE PER DAY
     Route: 048
     Dates: start: 20130704, end: 20130714
  2. SOL-MELCORT [Concomitant]
     Indication: DYSPNOEA
     Dosage: 62.5MG TWICE PER DAY
     Route: 042
     Dates: start: 20130527
  3. BAKTAR [Concomitant]
     Indication: INFECTION PROPHYLAXIS
     Route: 048
     Dates: start: 20130527
  4. TAKEPRON [Concomitant]
     Indication: PROPHYLAXIS AGAINST GASTROINTESTINAL ULCER
     Dosage: 15MG PER DAY
     Route: 048
     Dates: start: 20130514
  5. MUCODYNE [Concomitant]
     Indication: DYSPNOEA
     Dosage: 500MG THREE TIMES PER DAY
     Route: 048

REACTIONS (6)
  - Depressed level of consciousness [Fatal]
  - Respiratory arrest [Fatal]
  - Cardiac arrest [Fatal]
  - Respiratory failure [Fatal]
  - Disease progression [Fatal]
  - Obstruction [Fatal]
